FAERS Safety Report 8547653-4 (Version None)
Quarter: 2012Q3

REPORT INFORMATION
  Report Type: 
  Country: None (occurrence: None)
  Receive Date: 20120727
  Receipt Date: 20111027
  Transmission Date: 20120928
  Serious: Yes (Other)
  Sender: FDA-Public Use
  Company Number: US-ASTRAZENECA-2011SE65209

PATIENT
  Sex: Female

DRUGS (3)
  1. SEROQUEL [Suspect]
     Dosage: TOTAL DAILY DOSE OF 400 MG
     Route: 048
  2. SEROQUEL [Suspect]
     Dosage: TOTAL DAILY DOSE OF 300 MG
     Route: 048
  3. TOPAMAX [Suspect]
     Route: 065

REACTIONS (5)
  - TREMOR [None]
  - TARDIVE DYSKINESIA [None]
  - MUSCLE RIGIDITY [None]
  - MUSCLE SPASMS [None]
  - CONVULSION [None]
